FAERS Safety Report 13482001 (Version 2)
Quarter: 2017Q3

REPORT INFORMATION
  Report Type: Report from Study
  Country: US (occurrence: US)
  Receive Date: 20170424
  Receipt Date: 20170728
  Transmission Date: 20171127
  Serious: No
  Sender: FDA-Public Use
  Company Number: US-AMGEN-USASL2017036441

PATIENT
  Age: 54 Year
  Sex: Female
  Weight: 100.23 kg

DRUGS (1)
  1. REPATHA [Suspect]
     Active Substance: EVOLOCUMAB
     Indication: TYPE IIA HYPERLIPIDAEMIA
     Dosage: 420 MG,(3.5ML) QMO
     Route: 065
     Dates: start: 20170115

REACTIONS (2)
  - Injection site bruising [Recovered/Resolved]
  - Hot flush [Recovered/Resolved]
